FAERS Safety Report 8103377-9 (Version None)
Quarter: 2012Q1

REPORT INFORMATION
  Report Type: 
  Country: None (occurrence: None)
  Receive Date: 20120201
  Receipt Date: 20120127
  Transmission Date: 20120608
  Serious: Yes (Other)
  Sender: FDA-Public Use
  Company Number: US-PFIZER INC-2012023561

PATIENT
  Sex: Male
  Weight: 77.098 kg

DRUGS (3)
  1. LYRICA [Suspect]
     Indication: NERVE INJURY
     Dosage: 300 MG, 3X/DAY
     Route: 048
  2. LYRICA [Suspect]
     Indication: NEURALGIA
  3. FENTANYL [Concomitant]
     Dosage: UNK

REACTIONS (2)
  - BALANCE DISORDER [None]
  - BRAIN NEOPLASM [None]
